FAERS Safety Report 19930774 (Version 1)
Quarter: 2021Q4

REPORT INFORMATION
  Report Type: Spontaneous
  Country: ES (occurrence: ES)
  Receive Date: 20211007
  Receipt Date: 20211007
  Transmission Date: 20220303
  Serious: Yes (Hospitalization)
  Sender: FDA-Public Use
  Company Number: 2021A751596

PATIENT
  Age: 90 Year
  Sex: Female

DRUGS (5)
  1. QUETIAPINE [Suspect]
     Active Substance: QUETIAPINE
     Indication: Dementia Alzheimer^s type
     Dosage: 0-0-25
     Route: 048
     Dates: start: 2021, end: 20210919
  2. GABAPENTIN [Suspect]
     Active Substance: GABAPENTIN
     Dosage: 1 TABLET EVERY 24 HOURS
     Route: 048
     Dates: start: 2021, end: 20210919
  3. TRAZODONE [Suspect]
     Active Substance: TRAZODONE HYDROCHLORIDE
     Indication: Epilepsy
     Dosage: 0.5-0-1
     Route: 048
     Dates: start: 202109, end: 20210919
  4. KEPPRA [Suspect]
     Active Substance: LEVETIRACETAM
     Indication: Epilepsy
     Route: 048
     Dates: start: 202109, end: 20210919
  5. KEPPRA [Suspect]
     Active Substance: LEVETIRACETAM
     Indication: Epilepsy
     Route: 048

REACTIONS (1)
  - Depressed level of consciousness [Recovering/Resolving]

NARRATIVE: CASE EVENT DATE: 20210917
